FAERS Safety Report 24141193 (Version 1)
Quarter: 2024Q3

REPORT INFORMATION
  Report Type: Spontaneous
  Country: US (occurrence: US)
  Receive Date: 20240726
  Receipt Date: 20240726
  Transmission Date: 20241017
  Serious: No
  Sender: BRISTOL MYERS SQUIBB
  Company Number: US-BRISTOL-MYERS SQUIBB COMPANY-2024-114418

PATIENT
  Age: 74 Year
  Sex: Male

DRUGS (2)
  1. LENALIDOMIDE [Suspect]
     Active Substance: LENALIDOMIDE
     Indication: Plasma cell myeloma
     Dosage: FREQUENCY-21
     Dates: start: 20240528
  2. VELCADE [Suspect]
     Active Substance: BORTEZOMIB
     Indication: Product used for unknown indication

REACTIONS (1)
  - Rash [Unknown]

NARRATIVE: CASE EVENT DATE: 20240603
